FAERS Safety Report 21796012 (Version 2)
Quarter: 2023Q4

REPORT INFORMATION
  Report Type: Spontaneous
  Country: EG (occurrence: EG)
  Receive Date: 20221229
  Receipt Date: 20231005
  Transmission Date: 20240109
  Serious: Yes (Other)
  Sender: FDA-Public Use
  Company Number: EG-PFIZER INC-PV202200131981

PATIENT
  Age: 42 Year
  Sex: Male

DRUGS (4)
  1. INLYTA [Suspect]
     Active Substance: AXITINIB
     Indication: Renal cell carcinoma
     Dosage: 4 MG, 2X/DAY [4 TABLETS 2 TIMES DAILY]
     Route: 048
     Dates: start: 20221108
  2. LYRICA [Concomitant]
     Active Substance: PREGABALIN
     Dosage: 1 DF, 2X/DAY [ONE TAB 2 TIMES DAILY]
  3. FOLIC ACID [Concomitant]
     Active Substance: FOLIC ACID
     Dosage: 1 DF, DAILY [ONE TAB ONCE TO TWICE DAILY]
  4. DELTAVIT [Concomitant]
     Dosage: 1 DF, DAILY [ONE TAB DAILY]
     Route: 060

REACTIONS (1)
  - Neuropathy peripheral [Unknown]
